FAERS Safety Report 17416272 (Version 3)
Quarter: 2020Q2

REPORT INFORMATION
  Report Type: Spontaneous
  Country: US (occurrence: US)
  Receive Date: 20200213
  Receipt Date: 20200428
  Transmission Date: 20200713
  Serious: Yes (Hospitalization, Other)
  Sender: FDA-Public Use
  Company Number: US-INSUD PHARMA-2002US00019

PATIENT

DRUGS (4)
  1. SLYND [Suspect]
     Active Substance: DROSPIRENONE
     Indication: MENORRHAGIA
     Dosage: UNKNOWN
     Route: 048
     Dates: start: 20191211, end: 20200116
  2. SLYND [Suspect]
     Active Substance: DROSPIRENONE
     Indication: CONTRACEPTION
  3. AMFETAMINE;DEXAMFETAMINE [Concomitant]
     Dosage: 15 MG 24 HOUR CAPSULE, 1 DAILY
     Route: 048
  4. SLYND [Suspect]
     Active Substance: DROSPIRENONE
     Indication: MENSTRUATION IRREGULAR

REACTIONS (2)
  - Product use in unapproved indication [Unknown]
  - Embolism venous [Recovered/Resolved]

NARRATIVE: CASE EVENT DATE: 20200116
